FAERS Safety Report 5520409-2 (Version None)
Quarter: 2007Q4

REPORT INFORMATION
  Report Type: 
  Country: None (occurrence: None)
  Receive Date: 20071119
  Receipt Date: 20071105
  Transmission Date: 20080405
  Serious: Yes (Hospitalization)
  Sender: FDA-Public Use
  Company Number: IT-PFIZER INC-2007084196

PATIENT
  Sex: Female
  Weight: 65 kg

DRUGS (4)
  1. PREGABALIN [Suspect]
     Indication: FIBROMYALGIA
     Route: 048
     Dates: start: 20070731, end: 20071004
  2. TIMOPTIC [Concomitant]
     Route: 047
  3. OLMESARTAN MEDOXOMIL [Concomitant]
     Dosage: DAILY DOSE:20MG-FREQ:DAILY
     Route: 048
  4. ETORICOXIB [Concomitant]
     Route: 048
     Dates: start: 20070403, end: 20070418

REACTIONS (1)
  - CONVULSION [None]
